FAERS Safety Report 21330750 (Version 1)
Quarter: 2022Q3

REPORT INFORMATION
  Report Type: Spontaneous
  Country: CA (occurrence: CA)
  Receive Date: 20220914
  Receipt Date: 20220914
  Transmission Date: 20221026
  Serious: Yes (Hospitalization)
  Sender: FDA-Public Use
  Company Number: CA-JNJFOC-20220919675

PATIENT
  Age: 22 Year
  Sex: Female
  Weight: 136 kg

DRUGS (2)
  1. REMICADE [Suspect]
     Active Substance: INFLIXIMAB
     Indication: Crohn^s disease
     Route: 041
  2. PREDNISONE [Concomitant]
     Active Substance: PREDNISONE

REACTIONS (6)
  - Infusion site extravasation [Unknown]
  - Weight decreased [Unknown]
  - Infusion site bruising [Unknown]
  - Infusion site swelling [Unknown]
  - Condition aggravated [Unknown]
  - Off label use [Unknown]
